FAERS Safety Report 8997435 (Version 1)
Quarter: 2013Q1

REPORT INFORMATION
  Report Type: Spontaneous
  Country: US (occurrence: US)
  Receive Date: 20130104
  Receipt Date: 20130104
  Transmission Date: 20140127
  Serious: No
  Sender: FDA-Public Use
  Company Number: US-BAYER-2012-136093

PATIENT
  Age: 49 Year
  Sex: Female
  Weight: 58.96 kg

DRUGS (3)
  1. ALEVE CAPLET/TABLET,MIDOL EXTENDED RELIEF CAPLET [Suspect]
     Indication: ANALGESIC THERAPY
     Dosage: 2 DF, ONCE
     Route: 048
     Dates: start: 20121220, end: 20121220
  2. BAYER GENUINE ASPIRIN ORIGINAL STRENGTH [Suspect]
     Indication: ANALGESIC THERAPY
     Dosage: 325 MG, ONCE
     Route: 048
     Dates: start: 1997, end: 1997
  3. MULTIVITAMIN PREPARATION + MINERAL SUPPLEMENT [Concomitant]

REACTIONS (2)
  - Muscle spasms [Recovered/Resolved]
  - Muscle spasms [Recovered/Resolved]
